FAERS Safety Report 5732529-8 (Version None)
Quarter: 2008Q2

REPORT INFORMATION
  Report Type: 
  Country: None (occurrence: None)
  Receive Date: 20080506
  Receipt Date: 20080424
  Transmission Date: 20081010
  Serious: Yes (Death, Hospitalization)
  Sender: FDA-Public Use
  Company Number: 100#08#2008-02418

PATIENT
  Age: 78 Year
  Sex: Female

DRUGS (2)
  1. PACLITAXEL [Suspect]
     Indication: CERVIX CARCINOMA STAGE III
     Dosage: 140 MG/TIME ON DAY 1 AND ON DAY 15
     Route: 042
  2. S-1 (TEGAFUR, GIMERACIL, OTERACIL POTASSIUM) [Suspect]
     Indication: CERVIX CARCINOMA STAGE III
     Dosage: 80 MG ON DAYS 1 THROUGH 14
     Route: 048

REACTIONS (1)
  - BONE MARROW FAILURE [None]
